FAERS Safety Report 13715068 (Version 1)
Quarter: 2017Q3

REPORT INFORMATION
  Report Type: Spontaneous
  Country: US (occurrence: US)
  Receive Date: 20170704
  Receipt Date: 20170704
  Transmission Date: 20171127
  Serious: No
  Sender: FDA-Public Use
  Company Number: US-JNJFOC-20170607487

PATIENT
  Age: 76 Year
  Sex: Female
  Weight: 79.38 kg

DRUGS (5)
  1. JANUMET [Concomitant]
     Active Substance: METFORMIN HYDROCHLORIDE\SITAGLIPTIN PHOSPHATE
     Indication: DIABETES MELLITUS
     Dosage: 50/1000 MG
     Route: 065
     Dates: start: 2002
  2. ARIMIDEX [Concomitant]
     Active Substance: ANASTROZOLE
     Indication: NEOPLASM MALIGNANT
     Route: 065
     Dates: start: 2012
  3. OXYBUTYNIN [Concomitant]
     Active Substance: OXYBUTYNIN
     Indication: URINARY TRACT DISORDER
     Route: 065
  4. INVOKANA [Suspect]
     Active Substance: CANAGLIFLOZIN
     Indication: DIABETES MELLITUS
     Route: 048
     Dates: start: 201612
  5. OMEPRAZOLE. [Concomitant]
     Active Substance: OMEPRAZOLE
     Indication: DYSPEPSIA
     Route: 065
     Dates: start: 2013

REACTIONS (4)
  - Abnormal loss of weight [Not Recovered/Not Resolved]
  - Nausea [Not Recovered/Not Resolved]
  - Incorrect dose administered [Unknown]
  - Decreased appetite [Not Recovered/Not Resolved]

NARRATIVE: CASE EVENT DATE: 201610
